FAERS Safety Report 19786012 (Version 1)
Quarter: 2021Q3

REPORT INFORMATION
  Report Type: Spontaneous
  Country: RU (occurrence: RU)
  Receive Date: 20210903
  Receipt Date: 20210903
  Transmission Date: 20211014
  Serious: Yes (Hospitalization, Other)
  Sender: FDA-Public Use
  Company Number: RU-BAYER-2021-204446

PATIENT
  Age: 41 Year
  Sex: Female
  Weight: 63 kg

DRUGS (1)
  1. YAZ PLUS [Suspect]
     Active Substance: DROSPIRENONE\ETHINYL ESTRADIOL
     Indication: CONTRACEPTION
     Dosage: 1 DF, QD
     Route: 048
     Dates: start: 20210612, end: 20210726

REACTIONS (9)
  - Dyspnoea [None]
  - Muscle spasms [Recovered/Resolved]
  - Pulmonary embolism [None]
  - Rectal tenesmus [None]
  - Tinnitus [None]
  - Abdominal pain [None]
  - Headache [None]
  - Venous thrombosis limb [None]
  - Hemianaesthesia [None]

NARRATIVE: CASE EVENT DATE: 20210615
